FAERS Safety Report 15850032 (Version 1)
Quarter: 2019Q1

REPORT INFORMATION
  Report Type: Spontaneous
  Country: US (occurrence: US)
  Receive Date: 20190121
  Receipt Date: 20190121
  Transmission Date: 20190417
  Serious: No
  Sender: FDA-Public Use
  Company Number: US-SA-2019SA013610

PATIENT
  Sex: Female

DRUGS (2)
  1. REPATHA [Concomitant]
     Active Substance: EVOLOCUMAB
  2. PRALUENT [Suspect]
     Active Substance: ALIROCUMAB
     Dosage: UNK, OTHER
     Route: 058
     Dates: start: 20181116

REACTIONS (5)
  - Dizziness [Unknown]
  - Joint stiffness [Unknown]
  - Cognitive disorder [Unknown]
  - Disturbance in attention [Unknown]
  - Pain in extremity [Recovered/Resolved]
